FAERS Safety Report 5701839-2 (Version None)
Quarter: 2008Q2

REPORT INFORMATION
  Report Type: 
  Country: None (occurrence: None)
  Receive Date: 20080411
  Receipt Date: 20080411
  Transmission Date: 20081010
  Serious: Yes (Other)
  Sender: FDA-Public Use
  Company Number: None

PATIENT
  Age: 63 Year
  Sex: Female
  Weight: 71.21 kg

DRUGS (3)
  1. HEPARIN [Suspect]
     Indication: NEOPLASM MALIGNANT
     Dosage: HEPARIN 100U/ML FLUSH WITH 5ML AFTER SALINE FLUSH WHEN CHEMO CD TO POST
     Dates: start: 20080201, end: 20080321
  2. HEPARIN [Suspect]
  3. HEPARIN [Suspect]

REACTIONS (3)
  - NAUSEA [None]
  - PHARMACEUTICAL PRODUCT COMPLAINT [None]
  - VOMITING [None]
